FAERS Safety Report 8379353-8 (Version None)
Quarter: 2012Q2

REPORT INFORMATION
  Report Type: 
  Country: None (occurrence: None)
  Receive Date: 20120523
  Receipt Date: 20120521
  Transmission Date: 20120825
  Serious: Yes (Other)
  Sender: FDA-Public Use
  Company Number: PHEH2010US03876

PATIENT
  Sex: Male

DRUGS (55)
  1. GENTAMICIN [Concomitant]
  2. ZOCOR [Concomitant]
  3. ALLEGRA [Concomitant]
  4. MISOPROSTOL [Concomitant]
  5. SOMA [Concomitant]
  6. ZOFRAN [Concomitant]
  7. HYZAAR [Concomitant]
  8. SENOKOT [Concomitant]
  9. REGELAN [Concomitant]
  10. PROSCAR [Concomitant]
     Dosage: 5 MG, UNK
  11. TEMAZEPAM [Concomitant]
  12. KANTREX [Concomitant]
  13. BACITRACIN [Concomitant]
  14. VANCOMYCIN [Concomitant]
  15. WARFARIN SODIUM [Concomitant]
  16. VERSED [Concomitant]
  17. ZOMETA [Suspect]
     Indication: METASTASES TO BONE
     Dosage: 4 MG, QMO
     Dates: end: 20080528
  18. PROMETHAZINE [Concomitant]
  19. ANCEF [Concomitant]
  20. HEPARIN [Concomitant]
  21. ANTIVERT [Concomitant]
  22. INDOCIN [Concomitant]
  23. CYMBALTA [Concomitant]
  24. AREDIA [Suspect]
     Indication: METASTASES TO PROSTATE
     Dosage: 90 MG, QMO
  25. MARCAINE [Concomitant]
  26. KETOCONAZOLE [Concomitant]
  27. HYDROCORTISONE [Concomitant]
  28. ESTRADIOL [Concomitant]
     Dosage: 0.8 MG, UNK
  29. CELEBREX [Concomitant]
     Dosage: 100 MG, UNK
  30. OXYCODONE HCL [Concomitant]
  31. PRILOSEC [Concomitant]
  32. METHADONE HYDROCHLORIDE [Concomitant]
  33. ZOMETA [Suspect]
     Indication: METASTASES TO PROSTATE
  34. ZYVOX [Concomitant]
  35. CLONAZEPAM [Concomitant]
  36. PEPCID [Concomitant]
  37. LEXAPRO [Concomitant]
  38. FLUNISOLIDE [Concomitant]
  39. CHEMOTHERAPEUTICS [Concomitant]
  40. HYTRIN [Concomitant]
  41. CARVEDILOL [Concomitant]
  42. PERCOCET [Concomitant]
  43. VIVELLE [Concomitant]
  44. LORAZEPAM [Concomitant]
     Dosage: 0.5 MG, UNK
  45. NEOSPORIN [Concomitant]
  46. INDIGO CARMINE [Concomitant]
  47. NEXIUM [Concomitant]
  48. PROZAC [Concomitant]
     Dosage: 20 MG, UNK
  49. MOTRIN [Concomitant]
     Dosage: 800 MG, UNK
  50. METHADONE HCL [Concomitant]
  51. EFFEXOR [Concomitant]
  52. SENNA-MINT WAF [Concomitant]
  53. CYTOTEC [Concomitant]
  54. COUMADIN [Concomitant]
  55. MORPHINE [Concomitant]

REACTIONS (57)
  - TOOTHACHE [None]
  - DIVERTICULUM [None]
  - DYSPNOEA [None]
  - LUMBOSACRAL PLEXUS LESION [None]
  - OSTEONECROSIS OF JAW [None]
  - SWELLING [None]
  - ERYTHEMA [None]
  - SPINAL CORD COMPRESSION [None]
  - HIP FRACTURE [None]
  - AMNESIA [None]
  - DENTAL CARIES [None]
  - BRACHIAL PLEXOPATHY [None]
  - ANXIETY [None]
  - PAIN IN JAW [None]
  - PURULENT DISCHARGE [None]
  - LOOSE TOOTH [None]
  - VISUAL IMPAIRMENT [None]
  - HYPERTENSION [None]
  - SLEEP APNOEA SYNDROME [None]
  - OTITIS MEDIA [None]
  - DIZZINESS [None]
  - PAIN IN EXTREMITY [None]
  - TOXIC ENCEPHALOPATHY [None]
  - METABOLIC ENCEPHALOPATHY [None]
  - GASTROOESOPHAGEAL REFLUX DISEASE [None]
  - OSTEOMYELITIS [None]
  - CELLULITIS [None]
  - URINARY RETENTION [None]
  - CERVICOBRACHIAL SYNDROME [None]
  - PATHOLOGICAL FRACTURE [None]
  - OSTEOARTHRITIS [None]
  - CONFUSIONAL STATE [None]
  - AGITATION [None]
  - PNEUMONIA [None]
  - DISABILITY [None]
  - EXPOSED BONE IN JAW [None]
  - NEUROPATHY PERIPHERAL [None]
  - MITRAL VALVE INCOMPETENCE [None]
  - TRICUSPID VALVE INCOMPETENCE [None]
  - ROTATOR CUFF SYNDROME [None]
  - BONE LOSS [None]
  - HYPERLIPIDAEMIA [None]
  - ATRIAL FIBRILLATION [None]
  - NEURITIS [None]
  - PHIMOSIS [None]
  - PAIN [None]
  - ANHEDONIA [None]
  - ORAL INFECTION [None]
  - DEFORMITY [None]
  - CEREBROVASCULAR ACCIDENT [None]
  - TOBACCO ABUSE [None]
  - VENTRICULAR HYPERTROPHY [None]
  - HAEMORRHAGIC ANAEMIA [None]
  - CATARACT [None]
  - BACK PAIN [None]
  - ARTHRALGIA [None]
  - LUMBAR RADICULOPATHY [None]
